FAERS Safety Report 11649974 (Version 1)
Quarter: 2015Q4

REPORT INFORMATION
  Report Type: Spontaneous
  Country: US (occurrence: US)
  Receive Date: 20151021
  Receipt Date: 20151021
  Transmission Date: 20160304
  Serious: No
  Sender: FDA-Public Use
  Company Number: US-PURDUE-USA-2015-0124983

PATIENT
  Sex: Female

DRUGS (1)
  1. OXYCONTIN [Suspect]
     Active Substance: OXYCODONE HYDROCHLORIDE
     Indication: PRODUCT USED FOR UNKNOWN INDICATION
     Dosage: 10 MG, BID
     Route: 048
     Dates: start: 201501, end: 201503

REACTIONS (8)
  - Restlessness [Unknown]
  - Malaise [Unknown]
  - Dyspepsia [Unknown]
  - Feeling jittery [Unknown]
  - Intentional product use issue [Unknown]
  - Nausea [Unknown]
  - Impaired gastric emptying [Unknown]
  - Abdominal pain upper [Unknown]
